FAERS Safety Report 7748090-2 (Version None)
Quarter: 2011Q3

REPORT INFORMATION
  Report Type: 
  Country: None (occurrence: None)
  Receive Date: 20110913
  Receipt Date: 20110817
  Transmission Date: 20111222
  Serious: No
  Sender: FDA-Public Use
  Company Number: US-ALLERGAN-1111119US

PATIENT
  Age: 56 Year
  Sex: Female

DRUGS (5)
  1. LATISSE [Suspect]
  2. UNSPECIFIED VITAMINS [Suspect]
     Indication: PRODUCT USED FOR UNKNOWN INDICATION
     Dosage: UNK
     Dates: start: 20110501
  3. LATISSE [Suspect]
     Indication: GROWTH OF EYELASHES
     Dosage: 2 GTT, QHS
     Route: 061
     Dates: start: 20110723
  4. LATISSE [Suspect]
     Dosage: UNK
     Route: 061
     Dates: start: 20100801, end: 20110822
  5. UNSPECIFIED CHOLESTEROL MEDICATION [Suspect]
     Indication: PRODUCT USED FOR UNKNOWN INDICATION
     Dosage: UNK
     Dates: start: 20110501

REACTIONS (3)
  - INCORRECT DOSE ADMINISTERED [None]
  - TRICHORRHEXIS [None]
  - DRUG INTERACTION [None]
